FAERS Safety Report 4896867-3 (Version None)
Quarter: 2006Q1

REPORT INFORMATION
  Report Type: 
  Country: None (occurrence: None)
  Receive Date: 20060126
  Receipt Date: 20060117
  Transmission Date: 20060701
  Serious: Yes (Hospitalization)
  Sender: FDA-Public Use
  Company Number: 200610023BFR

PATIENT
  Age: 75 Year
  Sex: Male

DRUGS (9)
  1. MOXIFLOXACIN HYDROCHLORIDE [Suspect]
     Indication: LUNG DISORDER
     Dosage: 400 MG, TOTAL DAILY, ORAL
     Route: 048
     Dates: start: 20050214, end: 20050225
  2. AUGMENTIN '125' [Suspect]
     Indication: LUNG DISORDER
     Dosage: 3 G, TOTAL DAILY, ORAL
     Route: 048
     Dates: start: 20050211, end: 20050217
  3. ACETAMINOPHEN [Suspect]
     Indication: ARTHROPATHY
     Dosage: 3 G, TOTAL DAILY, ORAL
     Dates: start: 20050211, end: 20050215
  4. KARDEGIC [Concomitant]
  5. DIAMICRON [Concomitant]
  6. SERECOR [Concomitant]
  7. BECOTIDE [Concomitant]
  8. BRONCHODUAL [Concomitant]
  9. PNEUMOREL [Concomitant]

REACTIONS (2)
  - CHOLESTASIS [None]
  - CYTOLYTIC HEPATITIS [None]
